FAERS Safety Report 8853792 (Version 1)
Quarter: 2012Q4

REPORT INFORMATION
  Report Type: 
  Country: US (occurrence: US)
  Receive Date: 20121022
  Receipt Date: 20121022
  Transmission Date: 20130627
  Serious: Yes (Other)
  Sender: FDA-Public Use
  Company Number: CHPA2012US021793

PATIENT
  Age: 72 Year
  Sex: Male

DRUGS (1)
  1. TRIAMINIC COLD AND ALLERGY [Suspect]
     Indication: HYPERSENSITIVITY
     Dosage: 1 TSP, PRN
     Route: 048

REACTIONS (4)
  - Neoplasm malignant [Recovered/Resolved]
  - Type 2 diabetes mellitus [Not Recovered/Not Resolved]
  - Radiation injury [Not Recovered/Not Resolved]
  - Blood cholesterol increased [Not Recovered/Not Resolved]
